FAERS Safety Report 9557518 (Version 2)
Quarter: 2013Q4

REPORT INFORMATION
  Report Type: Spontaneous
  Country: US (occurrence: US)
  Receive Date: 20130926
  Receipt Date: 20131108
  Transmission Date: 20140711
  Serious: Yes (Other)
  Sender: FDA-Public Use
  Company Number: US-SANOFI-AVENTIS-2013SA093718

PATIENT
  Age: 87 Year
  Sex: Male
  Weight: 81.64 kg

DRUGS (1)
  1. ELIGARD [Suspect]
     Indication: PROSTATE CANCER
     Dosage: STARTED FROM 2-3 YEARS.?FREQUENCY: EVERY THREE MONTH
     Route: 065
     Dates: start: 20030605, end: 20130813

REACTIONS (5)
  - Cardiac failure congestive [Not Recovered/Not Resolved]
  - Myocardial infarction [Recovered/Resolved]
  - Metastasis [Unknown]
  - Malaise [Unknown]
  - Drug dose omission [Unknown]
